FAERS Safety Report 6175512-3 (Version None)
Quarter: 2009Q2

REPORT INFORMATION
  Report Type: 
  Country: None (occurrence: None)
  Receive Date: 20090429
  Receipt Date: 20090417
  Transmission Date: 20091009
  Serious: Yes (Death)
  Sender: FDA-Public Use
  Company Number: GXKR2009IR04788

PATIENT
  Age: 38 Year
  Sex: Female

DRUGS (1)
  1. PREDNISOLONE [Suspect]
     Indication: BRONCHIAL HYPERREACTIVITY
     Dosage: 15 MG, QD

REACTIONS (10)
  - CHILLS [None]
  - DYSPNOEA [None]
  - HAEMOPTYSIS [None]
  - LYMPHOCYTE PERCENTAGE DECREASED [None]
  - MECHANICAL VENTILATION [None]
  - NEUTROPHIL PERCENTAGE INCREASED [None]
  - NIGHT SWEATS [None]
  - PNEUMOCYSTIS JIROVECI PNEUMONIA [None]
  - PYREXIA [None]
  - RESPIRATORY FAILURE [None]
